FAERS Safety Report 11964759 (Version 1)
Quarter: 2016Q1

REPORT INFORMATION
  Report Type: Spontaneous
  Country: US (occurrence: None)
  Receive Date: 20160125
  Receipt Date: 20160125
  Transmission Date: 20160526
  Serious: Yes (Other)
  Sender: FDA-Public Use
  Company Number: None

PATIENT
  Age: 65 Year
  Sex: Female
  Weight: 59.88 kg

DRUGS (14)
  1. CIPROFLOXACIN 500 MG TEVA USA [Suspect]
     Active Substance: CIPROFLOXACIN
     Indication: URINARY TRACT INFECTION
     Dosage: 1 PILL TWICE DAILY TAKEN BY MOUTH
     Route: 048
     Dates: start: 20150925, end: 20150928
  2. SYNTHROID [Concomitant]
     Active Substance: LEVOTHYROXINE SODIUM
  3. FISH OIL [Concomitant]
     Active Substance: FISH OIL
  4. MAQUI BERRY EXTRACT [Concomitant]
  5. MAGNESIUM GLYCINATE [Concomitant]
     Active Substance: MAGNESIUM GLYCINATE
  6. CURCUMIN/GINGER/OLIVE EXTRACT [Concomitant]
  7. ESTRADIOL. [Concomitant]
     Active Substance: ESTRADIOL
  8. MULTIVITAMIN/MINERAL SUPPLEMENT [Concomitant]
  9. VITAMIN C [Concomitant]
     Active Substance: ASCORBIC ACID
  10. TART CHERRY JUICE [Concomitant]
  11. BUPROPION. [Concomitant]
     Active Substance: BUPROPION
  12. PROGESTERONE. [Concomitant]
     Active Substance: PROGESTERONE
  13. PROBIOTICS [Concomitant]
     Active Substance: PROBIOTICS NOS
  14. UBIQUINOL [Concomitant]
     Active Substance: UBIQUINOL

REACTIONS (7)
  - Arthralgia [None]
  - Paraesthesia [None]
  - Muscular weakness [None]
  - Nausea [None]
  - Tendon pain [None]
  - Fatigue [None]
  - Activities of daily living impaired [None]

NARRATIVE: CASE EVENT DATE: 20150928
